FAERS Safety Report 7749304-5 (Version None)
Quarter: 2011Q3

REPORT INFORMATION
  Report Type: 
  Country: None (occurrence: None)
  Receive Date: 20110909
  Receipt Date: 20110826
  Transmission Date: 20111222
  Serious: Yes (Death)
  Sender: FDA-Public Use
  Company Number: 2011ST000165

PATIENT
  Age: 81 Year
  Sex: Female

DRUGS (1)
  1. CARNITOR [Suspect]
     Indication: CARDIAC FAILURE CHRONIC

REACTIONS (12)
  - VENTRICULAR FIBRILLATION [None]
  - PERIPHERAL COLDNESS [None]
  - CONDUCTION DISORDER [None]
  - SUDDEN DEATH [None]
  - VENTRICULAR ARRHYTHMIA [None]
  - PULSE ABSENT [None]
  - BLOOD PRESSURE IMMEASURABLE [None]
  - BLOOD PRESSURE DECREASED [None]
  - ELECTROCARDIOGRAM ABNORMAL [None]
  - LOSS OF CONSCIOUSNESS [None]
  - CAROTID PULSE ABNORMAL [None]
  - CARDIAC ARREST [None]
